FAERS Safety Report 12109142 (Version 1)
Quarter: 2016Q1

REPORT INFORMATION
  Report Type: Spontaneous
  Country: US (occurrence: None)
  Receive Date: 20160222
  Receipt Date: 20160222
  Transmission Date: 20160526
  Serious: No
  Sender: FDA-Public Use
  Company Number: None

PATIENT
  Age: 31 Year
  Sex: Female

DRUGS (1)
  1. MIRENA [Suspect]
     Active Substance: LEVONORGESTREL
     Indication: CONTRACEPTION
     Dates: start: 20150325, end: 20160114

REACTIONS (3)
  - Complication of device removal [None]
  - Embedded device [None]
  - Device breakage [None]

NARRATIVE: CASE EVENT DATE: 20160114
